FAERS Safety Report 10952999 (Version 1)
Quarter: 2015Q1

REPORT INFORMATION
  Report Type: Spontaneous
  Country: IN (occurrence: IN)
  Receive Date: 20150325
  Receipt Date: 20150325
  Transmission Date: 20150721
  Serious: Yes (Other)
  Sender: FDA-Public Use
  Company Number: IN-BAXTER-2015BAX013414

PATIENT
  Age: 10 Year
  Weight: 26 kg

DRUGS (5)
  1. SEVOFLURANE LIQUID FOR INHALATION [Suspect]
     Active Substance: SEVOFLURANE
     Indication: INDUCTION OF ANAESTHESIA
     Route: 055
  2. POVIDONE IODINE [Suspect]
     Active Substance: POVIDONE-IODINE
     Indication: HEPATIC CYST
     Route: 065
  3. VECURONIUM [Suspect]
     Active Substance: VECURONIUM BROMIDE
     Indication: MAINTENANCE OF ANAESTHESIA
     Route: 065
  4. POVIDONE IODINE [Suspect]
     Active Substance: POVIDONE-IODINE
     Indication: ECHINOCOCCIASIS
  5. FENTANYL. [Suspect]
     Active Substance: FENTANYL
     Indication: MAINTENANCE OF ANAESTHESIA
     Route: 065

REACTIONS (2)
  - Acute kidney injury [None]
  - Toxicity to various agents [Unknown]
